FAERS Safety Report 10802872 (Version 1)
Quarter: 2015Q1

REPORT INFORMATION
  Report Type: Report from Study
  Country: RU (occurrence: RU)
  Receive Date: 20150217
  Receipt Date: 20150217
  Transmission Date: 20150721
  Serious: Yes (Hospitalization)
  Sender: FDA-Public Use
  Company Number: US-ASTRAZENECA-2015SE14726

PATIENT
  Age: 233 Day

DRUGS (10)
  1. BUDENIT [Concomitant]
     Indication: BRONCHOPULMONARY DYSPLASIA
     Route: 055
     Dates: start: 20141229, end: 20150108
  2. BERODUAL [Concomitant]
     Active Substance: FENOTEROL HYDROBROMIDE\IPRATROPIUM BROMIDE
     Indication: BRONCHOPULMONARY DYSPLASIA
     Route: 065
     Dates: start: 20141229, end: 20150108
  3. CEFTRIAXONE. [Concomitant]
     Active Substance: CEFTRIAXONE
     Indication: BRONCHOPULMONARY DYSPLASIA
     Dates: start: 20141230, end: 20150106
  4. BERODUAL [Concomitant]
     Active Substance: FENOTEROL HYDROBROMIDE\IPRATROPIUM BROMIDE
     Indication: BRONCHOPULMONARY DYSPLASIA
     Route: 065
     Dates: start: 20150121, end: 20150124
  5. BUDENIT [Concomitant]
     Indication: BRONCHOPULMONARY DYSPLASIA
     Dates: start: 20150121
  6. LAZOLVAN [Concomitant]
     Indication: PRODUCT USED FOR UNKNOWN INDICATION
     Dates: start: 20150121, end: 20150122
  7. SYNAGIS [Suspect]
     Active Substance: PALIVIZUMAB
     Indication: ANTIVIRAL PROPHYLAXIS
     Route: 030
     Dates: start: 20141216
  8. FENISTIL [Concomitant]
     Active Substance: DIMETHINDENE
     Indication: ALLERGY PROPHYLAXIS
     Route: 048
     Dates: start: 20141230, end: 20150101
  9. NAZIVIN 0.01% [Concomitant]
     Indication: PRODUCT USED FOR UNKNOWN INDICATION
     Route: 065
  10. INTERFERON [Concomitant]
     Active Substance: INTERFERON
     Indication: PRODUCT USED FOR UNKNOWN INDICATION
     Route: 065
     Dates: start: 20150121, end: 20150122

REACTIONS (11)
  - Dyspnoea [Recovered/Resolved]
  - Decreased appetite [Recovered/Resolved]
  - Bronchopulmonary dysplasia [Recovered/Resolved]
  - Rhinitis [Unknown]
  - Leukocytosis [Unknown]
  - Lymphocytosis [Unknown]
  - Lethargy [Recovered/Resolved]
  - Cough [Unknown]
  - Dysphonia [Unknown]
  - Proteinuria [Unknown]
  - Respiratory tract infection viral [Recovered/Resolved]

NARRATIVE: CASE EVENT DATE: 20141226
